FAERS Safety Report 18993169 (Version 1)
Quarter: 2021Q1

REPORT INFORMATION
  Report Type: Spontaneous
  Country: UA (occurrence: UA)
  Receive Date: 20210310
  Receipt Date: 20210310
  Transmission Date: 20210420
  Serious: Yes (Hospitalization)
  Sender: FDA-Public Use
  Company Number: UA-ALLERGAN-2110592US

PATIENT
  Sex: Male

DRUGS (7)
  1. THIOTRIAZOLIN [Concomitant]
     Dosage: UNK
  2. FLENOX [Concomitant]
     Dosage: UNK
  3. MILDRONATE [Concomitant]
     Active Substance: MELDONIUM
     Dosage: UNK
  4. ANALGIN [Concomitant]
     Dosage: UNK
  5. CEFTAZIDIME;AVIBACTAM ? BP [Suspect]
     Active Substance: AVIBACTAM SODIUM\CEFTAZIDIME
     Indication: COVID-19
     Dosage: 3 VIALS, 3X/DAY
     Route: 041
     Dates: start: 20210218, end: 20210227
  6. ZYVOX [Concomitant]
     Active Substance: LINEZOLID
     Dosage: UNK
  7. DIMEDROL [Concomitant]
     Active Substance: DIPHENHYDRAMINE
     Dosage: UNK

REACTIONS (5)
  - Tremor [Recovering/Resolving]
  - Heart rate increased [Recovering/Resolving]
  - Off label use [Unknown]
  - Angina pectoris [Recovering/Resolving]
  - Body temperature decreased [Recovering/Resolving]

NARRATIVE: CASE EVENT DATE: 20210218
